FAERS Safety Report 8399815-7 (Version None)
Quarter: 2012Q1

REPORT INFORMATION
  Report Type: 
  Country: None (occurrence: None)
  Receive Date: 20120323
  Receipt Date: 20110223
  Transmission Date: 20120608
  Serious: Yes (Hospitalization)
  Sender: FDA-Public Use
  Company Number: 163-21880-11011187

PATIENT
  Age: 67 Year
  Sex: Male

DRUGS (5)
  1. LOSARTAN POTASSIUM [Concomitant]
  2. DEXAMETHASONE [Concomitant]
  3. REVLIMID [Suspect]
     Indication: MULTIPLE MYELOMA
     Dosage: 10 MG, X 21 DAYS, PO
     Route: 048
     Dates: start: 20101217
  4. ASPIRIN [Concomitant]
  5. HYDROCHLOROTHIAZIDE [Concomitant]

REACTIONS (1)
  - ATRIAL FIBRILLATION [None]
